FAERS Safety Report 4873073-X (Version None)
Quarter: 2006Q1

REPORT INFORMATION
  Report Type: 
  Country: None (occurrence: None)
  Receive Date: 20060105
  Receipt Date: 20050815
  Transmission Date: 20060701
  Serious: Yes (Hospitalization, Other)
  Sender: FDA-Public Use
  Company Number: PHEH2005US09030

PATIENT
  Age: 37 Year
  Sex: Male
  Weight: 86.167 kg

DRUGS (2)
  1. DIOVAN [Suspect]
     Indication: AORTIC VALVE INCOMPETENCE
     Dosage: 80 MG, QD
     Route: 048
     Dates: start: 20040201
  2. PROPECIA [Concomitant]
     Indication: ALOPECIA

REACTIONS (2)
  - CONDITION AGGRAVATED [None]
  - GRAND MAL CONVULSION [None]
